FAERS Safety Report 7269328-4 (Version None)
Quarter: 2011Q1

REPORT INFORMATION
  Report Type: 
  Country: None (occurrence: None)
  Receive Date: 20110202
  Receipt Date: 20101020
  Transmission Date: 20110831
  Serious: No
  Sender: FDA-Public Use
  Company Number: US-BAYER-201023233BCC

PATIENT
  Sex: Male
  Weight: 90.909 kg

DRUGS (4)
  1. HYDROCHLOROTHIAZIDE [Concomitant]
  2. PRAVASTATIN [Concomitant]
  3. ZEGERID [Concomitant]
  4. ALEVE [Suspect]
     Indication: BACK PAIN
     Route: 048

REACTIONS (1)
  - CONSTIPATION [None]
